FAERS Safety Report 4575832-X (Version None)
Quarter: 2005Q1

REPORT INFORMATION
  Report Type: 
  Country: None (occurrence: None)
  Receive Date: 20050201
  Receipt Date: 20050201
  Transmission Date: 20050727
  Serious: Yes (Other)
  Sender: FDA-Public Use
  Company Number: None

PATIENT
  Age: 68 Year
  Sex: Female
  Weight: 53 kg

DRUGS (14)
  1. RIFAMPIN [Suspect]
     Indication: MYCOBACTERIUM AVIUM COMPLEX INFECTION
     Dosage: 600 MG  MON, WED, FRI  ORAL
     Route: 048
     Dates: start: 20040524, end: 20040616
  2. RIFAMPIN [Suspect]
     Indication: MYCOBACTERIUM CHELONEI INFECTION
     Dosage: 600 MG  MON, WED, FRI  ORAL
     Route: 048
     Dates: start: 20040524, end: 20040616
  3. AMIKACIN [Concomitant]
  4. SEREVENT [Concomitant]
  5. ALBUTEROL [Concomitant]
  6. CLOFAZIMINE [Concomitant]
  7. AZITHROMYCIN [Concomitant]
  8. ACIPHEX [Concomitant]
  9. POTASSIUM CHLORIDE [Concomitant]
  10. AMBIEN [Concomitant]
  11. XANAX [Concomitant]
  12. DARVOCET-N 100 [Concomitant]
  13. MAXZIDE [Concomitant]
  14. XALATAN [Concomitant]

REACTIONS (5)
  - BURNING SENSATION [None]
  - ERYTHEMA [None]
  - GINGIVAL DISORDER [None]
  - ORAL DISCOMFORT [None]
  - TONGUE DISORDER [None]
